FAERS Safety Report 9159492 (Version 1)
Quarter: 2013Q1

REPORT INFORMATION
  Report Type: Spontaneous
  Country: US (occurrence: US)
  Receive Date: 20130313
  Receipt Date: 20130313
  Transmission Date: 20140127
  Serious: Yes (Death)
  Sender: FDA-Public Use
  Company Number: PHEH2013US005738

PATIENT
  Age: 90 Year
  Sex: Female

DRUGS (6)
  1. EXJADE [Suspect]
     Indication: IRON OVERLOAD
     Dosage: 250 MG, QD
     Route: 048
  2. NADOLOL [Concomitant]
     Dosage: 160 MG
  3. LEVOTHYROXINE [Concomitant]
     Dosage: 100 UG
  4. LISINOPRIL + HIDROCLOROTIAZIDA [Concomitant]
     Dosage: 20-25 MG,
  5. CALCIUM D                          /00944201/ [Concomitant]
  6. SENOKOT                                 /UNK/ [Concomitant]
     Dosage: 8.6 MG

REACTIONS (1)
  - Death [Fatal]
